FAERS Safety Report 10588739 (Version 2)
Quarter: 2014Q4

REPORT INFORMATION
  Report Type: Spontaneous
  Country: CN (occurrence: CN)
  Receive Date: 20141117
  Receipt Date: 20141215
  Transmission Date: 20150529
  Serious: Yes (Other)
  Sender: FDA-Public Use
  Company Number: CN-GLAXOSMITHKLINE-CN2014GSK019481

PATIENT
  Age: 40 Year
  Sex: Male

DRUGS (1)
  1. HEPTODIN [Suspect]
     Active Substance: LAMIVUDINE
     Indication: HEPATITIS B
     Dosage: UNK
     Route: 048
     Dates: start: 201309, end: 201409

REACTIONS (2)
  - Hepatic cirrhosis [Unknown]
  - Viral infection [Unknown]

NARRATIVE: CASE EVENT DATE: 20141107
